FAERS Safety Report 6187527-X (Version None)
Quarter: 2009Q2

REPORT INFORMATION
  Report Type: 
  Country: None (occurrence: None)
  Receive Date: 20090512
  Receipt Date: 20090225
  Transmission Date: 20091009
  Serious: Yes (Death, Other)
  Sender: FDA-Public Use
  Company Number: IT-ALEXION-A200900148

PATIENT

DRUGS (6)
  1. SOLIRIS [Suspect]
     Indication: PROPHYLAXIS AGAINST TRANSPLANT REJECTION
     Dosage: 600 MG, SINGLE
     Route: 042
     Dates: start: 20090129, end: 20090129
  2. SOLIRIS [Suspect]
     Dosage: 600 MG, SINGLE
     Route: 042
     Dates: start: 20090205, end: 20090205
  3. ANTIBIOTICS [Concomitant]
     Indication: PROPHYLAXIS
  4. ANTIVIRALS NOS [Concomitant]
  5. ANTIFUNGALS [Concomitant]
     Indication: PROPHYLAXIS
  6. IMMUNOSUPPRESSANTS [Concomitant]

REACTIONS (3)
  - CEREBRAL ASPERGILLOSIS [None]
  - ENTEROCOCCAL SEPSIS [None]
  - RESPIRATORY FAILURE [None]
